FAERS Safety Report 4369395-1 (Version None)
Quarter: 2004Q2

REPORT INFORMATION
  Report Type: 
  Country: None (occurrence: None)
  Receive Date: 20040527
  Receipt Date: 20040524
  Transmission Date: 20050107
  Serious: Yes (Death)
  Sender: FDA-Public Use
  Company Number: KII-1999-0000950

PATIENT
  Sex: Male

DRUGS (1)
  1. OXYFAST CONCENTRATE 20 MG/ML (0XYCODONE HYDROCHLORIDE) ORAL SOLUTION [Suspect]

REACTIONS (1)
  - DEATH [None]
